FAERS Safety Report 6879759-X (Version None)
Quarter: 2010Q3

REPORT INFORMATION
  Report Type: 
  Country: None (occurrence: None)
  Receive Date: 20100728
  Receipt Date: 20100713
  Transmission Date: 20110219
  Serious: Yes (Other)
  Sender: FDA-Public Use
  Company Number: AU-SANOFI-AVENTIS-2010SA040744

PATIENT
  Sex: Male

DRUGS (4)
  1. RIFAMPICIN [Suspect]
     Indication: MYCOBACTERIUM ULCERANS INFECTION
  2. CIPROFLOXACIN [Suspect]
     Indication: MYCOBACTERIUM ULCERANS INFECTION
  3. CEFAZOLIN [Suspect]
     Indication: MYCOBACTERIUM ULCERANS INFECTION
     Route: 042
  4. CLARITHROMYCIN [Suspect]
     Indication: MYCOBACTERIUM ULCERANS INFECTION

REACTIONS (2)
  - MYCOBACTERIUM ULCERANS INFECTION [None]
  - PARADOXICAL DRUG REACTION [None]
